FAERS Safety Report 8487502-6 (Version None)
Quarter: 2012Q3

REPORT INFORMATION
  Report Type: 
  Country: None (occurrence: None)
  Receive Date: 20120705
  Receipt Date: 20120626
  Transmission Date: 20120928
  Serious: Yes (Other)
  Sender: FDA-Public Use
  Company Number: JP-US-EMD SERONO, INC.-7144062

PATIENT
  Sex: Female
  Weight: 48 kg

DRUGS (13)
  1. GONAL-F RFF PEN [Suspect]
     Indication: OVULATION INDUCTION
     Route: 058
     Dates: start: 20110729, end: 20110806
  2. GONAL-F RFF PEN [Suspect]
     Route: 058
     Dates: start: 20110920, end: 20110922
  3. DUPHASTON [Concomitant]
     Indication: POLYCYSTIC OVARIES
     Dates: start: 20110925, end: 20111008
  4. VECTAN [Concomitant]
     Indication: PRODUCT USED FOR UNKNOWN INDICATION
     Dates: start: 20110810, end: 20110823
  5. CHORIONIC GONADOTROPIN [Concomitant]
     Indication: POLYCYSTIC OVARIES
     Dates: start: 20110923, end: 20110923
  6. CHORIONIC GONADOTROPIN [Concomitant]
     Indication: OVULATION INDUCTION
     Dates: start: 20110807, end: 20110807
  7. VECTAN [Concomitant]
     Indication: POLYCYSTIC OVARIES
     Dates: start: 20110925, end: 20111008
  8. VECTAN [Concomitant]
     Indication: ANOVULATORY CYCLE
  9. GONAL-F RFF PEN [Suspect]
     Indication: POLYCYSTIC OVARIES
     Route: 058
     Dates: start: 20110829, end: 20110909
  10. GONAL-F RFF PEN [Suspect]
     Indication: ANOVULATORY CYCLE
     Route: 058
     Dates: start: 20110910, end: 20110913
  11. CHORIONIC GONADOTROPIN [Concomitant]
     Indication: ANOVULATORY CYCLE
  12. DUPHASTON [Concomitant]
     Indication: PRODUCT USED FOR UNKNOWN INDICATION
     Dates: start: 20110810, end: 20110823
  13. DUPHASTON [Concomitant]
     Indication: ANOVULATORY CYCLE

REACTIONS (1)
  - ABORTION [None]
